FAERS Safety Report 9353166 (Version 4)
Quarter: 2013Q3

REPORT INFORMATION
  Report Type: Report from Study
  Country: US (occurrence: US)
  Receive Date: 20130618
  Receipt Date: 20130823
  Transmission Date: 20140515
  Serious: Yes (Hospitalization, Disabling, Other)
  Sender: FDA-Public Use
  Company Number: US-ASTELLAS-2013US006262

PATIENT
  Age: 75 Year
  Sex: Female

DRUGS (11)
  1. ERLOTINIB TABLET [Suspect]
     Indication: BREAST CANCER STAGE II
     Dosage: 150 MG, UID/QD
     Route: 048
     Dates: start: 20120309, end: 20130226
  2. ERLOTINIB TABLET [Suspect]
     Indication: HYPOGAMMAGLOBULINAEMIA
     Dosage: 150 MG, 5 DAYS/WEEK
     Route: 048
     Dates: start: 20130301
  3. ERLOTINIB TABLET [Suspect]
     Indication: INFECTION
  4. RITUXAN [Suspect]
     Indication: CHRONIC LYMPHOCYTIC LEUKAEMIA
     Dosage: UNK
     Route: 042
     Dates: start: 20090808, end: 20091123
  5. FLUDARABINE [Suspect]
     Indication: CHRONIC LYMPHOCYTIC LEUKAEMIA
     Dosage: UNK
     Route: 065
     Dates: start: 20090808, end: 20091123
  6. CYTOXAN [Suspect]
     Indication: CHRONIC LYMPHOCYTIC LEUKAEMIA
     Dosage: UNK
     Route: 065
     Dates: start: 20090808, end: 20091123
  7. FEMARA [Concomitant]
     Indication: PRODUCT USED FOR UNKNOWN INDICATION
     Dosage: UNK
     Route: 065
     Dates: start: 20120309
  8. ARIMIDEX [Concomitant]
     Indication: PRODUCT USED FOR UNKNOWN INDICATION
     Dosage: UNK
     Route: 065
  9. GABAPENTIN [Concomitant]
     Indication: NEUROPATHY PERIPHERAL
     Dosage: UNK
     Route: 065
  10. CYMBALTA [Concomitant]
     Indication: PRODUCT USED FOR UNKNOWN INDICATION
     Dosage: UNK
     Route: 065
  11. VICODIN [Concomitant]
     Indication: PRODUCT USED FOR UNKNOWN INDICATION
     Dosage: UNK
     Route: 065

REACTIONS (17)
  - Off label use [Unknown]
  - Deafness unilateral [Unknown]
  - Hypoacusis [Unknown]
  - Squamous cell carcinoma [Recovered/Resolved with Sequelae]
  - Breast cancer metastatic [Not Recovered/Not Resolved]
  - Hypoaesthesia [Recovering/Resolving]
  - Lymphoedema [Unknown]
  - Neuropathy peripheral [Unknown]
  - Hypoaesthesia [Unknown]
  - Thrombocytopenia [Unknown]
  - Fatigue [Not Recovered/Not Resolved]
  - Decreased appetite [Recovered/Resolved]
  - Skin exfoliation [Recovered/Resolved with Sequelae]
  - Pyrexia [Unknown]
  - Skin exfoliation [Unknown]
  - Cellulitis [Recovered/Resolved]
  - Epistaxis [Unknown]
